FAERS Safety Report 8630267 (Version 2)
Quarter: 2012Q4

REPORT INFORMATION
  Report Type: 
  Country: GB (occurrence: GB)
  Receive Date: 20120622
  Receipt Date: 20120920
  Transmission Date: 20130627
  Serious: Yes (Hospitalization)
  Sender: FDA-Public Use
  Company Number: GB-BAYER-2012-060807

PATIENT
  Age: 36 Year
  Sex: Female
  Weight: 65 kg

DRUGS (1)
  1. YASMIN, FILM-COATED TABLETS, 0.03 MG/3 MG [Suspect]
     Indication: ORAL CONTRACEPTION
     Dosage: 1 DF, QD
     Route: 048
     Dates: start: 20120517, end: 20120607

REACTIONS (5)
  - Suicide attempt [Recovering/Resolving]
  - Abnormal behaviour [None]
  - Irritability [Unknown]
  - Depressed mood [Unknown]
  - Tearfulness [Unknown]
